FAERS Safety Report 8157819-3 (Version None)
Quarter: 2012Q1

REPORT INFORMATION
  Report Type: 
  Country: None (occurrence: None)
  Receive Date: 20120222
  Receipt Date: 20120201
  Transmission Date: 20120608
  Serious: No
  Sender: FDA-Public Use
  Company Number: US-ROXANE LABORATORIES, INC.-2012-RO-00604RO

PATIENT
  Sex: Female

DRUGS (4)
  1. CODEINE SUL TAB [Suspect]
  2. LIPITOR [Concomitant]
  3. LISINOPRIL [Concomitant]
  4. TORADOL [Concomitant]

REACTIONS (1)
  - DRUG HYPERSENSITIVITY [None]
